FAERS Safety Report 17214836 (Version 4)
Quarter: 2020Q1

REPORT INFORMATION
  Report Type: Spontaneous
  Country: ES (occurrence: ES)
  Receive Date: 20191230
  Receipt Date: 20200130
  Transmission Date: 20200409
  Serious: Yes (Other)
  Sender: FDA-Public Use
  Company Number: ES-MYLANLABS-2019M1128484

PATIENT
  Age: 41 Year
  Sex: Male

DRUGS (26)
  1. LAMOTRIGINE. [Suspect]
     Active Substance: LAMOTRIGINE
     Dosage: 50 MILLIGRAM, QD
  2. TRYPTIZOL [Suspect]
     Active Substance: AMITRIPTYLINE HYDROCHLORIDE
     Indication: MIGRAINE
     Dosage: 10 MG, QD
     Route: 065
     Dates: start: 201211
  3. TRYPTIZOL [Suspect]
     Active Substance: AMITRIPTYLINE HYDROCHLORIDE
     Indication: MIGRAINE
     Dosage: 1 DF, QD
     Route: 065
  4. PAROXETINE. [Suspect]
     Active Substance: PAROXETINE
     Indication: MIGRAINE
     Dosage: UNK
     Route: 065
  5. TRYPTIZOL [Suspect]
     Active Substance: AMITRIPTYLINE HYDROCHLORIDE
     Dosage: 10 MG, QD (10 MG,1 IN 1 D)
     Dates: start: 201110
  6. TOPIRAMATE. [Suspect]
     Active Substance: TOPIRAMATE
     Dosage: 25 MG, QD
     Route: 065
     Dates: start: 200906
  7. HEMICRANEAL                        /01771901/ [Suspect]
     Active Substance: ACETAMINOPHEN\BELLADONNA LEAF\CAFFEINE\ERGOTAMINE TARTRATE
     Indication: MIGRAINE
     Dosage: UNK
     Route: 065
  8. IBUPROFEN. [Suspect]
     Active Substance: IBUPROFEN
     Dosage: UNK
  9. LAMOTRIGINE. [Suspect]
     Active Substance: LAMOTRIGINE
     Indication: MIGRAINE
     Dosage: 50 MG, QD, (50 MG,1 IN 1 D)
     Route: 065
     Dates: start: 201110
  10. TRYPTIZOL [Suspect]
     Active Substance: AMITRIPTYLINE HYDROCHLORIDE
     Dosage: 1 DOSAGE FORM, QD
     Route: 065
  11. SIBELIUM                           /00505202/ [Suspect]
     Active Substance: FLUNARIZINE
     Indication: MIGRAINE
     Dosage: 5 MILLIGRAM, QD
     Route: 065
  12. TOPIRAMATE. [Suspect]
     Active Substance: TOPIRAMATE
     Indication: MIGRAINE
     Dosage: 50 MG, UNK
     Route: 065
  13. BOTOX [Suspect]
     Active Substance: ONABOTULINUMTOXINA
     Indication: MIGRAINE
     Dosage: 150 IU, UNK, (150 IU,1 IN 1 D)
     Route: 065
  14. ZOMIG [Suspect]
     Active Substance: ZOLMITRIPTAN
     Indication: MIGRAINE
     Dosage: UNK
     Route: 065
  15. PREDNISONE. [Suspect]
     Active Substance: PREDNISONE
     Indication: MIGRAINE
     Dosage: 60 MG, QD, (60 MG,1 IN 1 D)
     Route: 065
  16. LISALGIL [Suspect]
     Active Substance: METAMIZOLE SODIUM
     Indication: MIGRAINE
     Dosage: UNK
     Route: 065
  17. DEPAKINE                           /00228502/ [Suspect]
     Active Substance: VALPROATE SODIUM
     Indication: MIGRAINE
     Dosage: 500 MG, QD
     Route: 065
     Dates: start: 201211
  18. VOLTAREN [Suspect]
     Active Substance: DICLOFENAC SODIUM
     Indication: MIGRAINE
     Dosage: UNK
     Route: 065
  19. NOLOTIL                            /06276702/ [Suspect]
     Active Substance: METAMIZOLE MAGNESIUM
     Indication: MIGRAINE
     Dosage: UNK
     Route: 065
  20. IBUPROFEN. [Suspect]
     Active Substance: IBUPROFEN
     Indication: MIGRAINE
     Dosage: UNK
     Route: 065
  21. LEXATIN                            /00424801/ [Suspect]
     Active Substance: BROMAZEPAM
     Indication: MIGRAINE
     Dosage: 3 MILLIGRAM, QD
     Route: 065
  22. BOTOX [Suspect]
     Active Substance: ONABOTULINUMTOXINA
     Dosage: 100 IU, UNK, (100 IU,1 IN 1 D)
     Route: 065
     Dates: start: 201110, end: 201110
  23. BOTOX [Suspect]
     Active Substance: ONABOTULINUMTOXINA
     Dosage: UNK, SINGLE
     Route: 065
  24. XEOMIN [Suspect]
     Active Substance: INCOBOTULINUMTOXINA
     Indication: MIGRAINE
     Dosage: 150 IU, UNK, 150 IU, QD
     Route: 065
     Dates: start: 20130307
  25. RELPAX [Suspect]
     Active Substance: ELETRIPTAN HYDROBROMIDE
     Indication: MIGRAINE
     Dosage: UNK
     Route: 065
  26. MAXALT [Suspect]
     Active Substance: RIZATRIPTAN BENZOATE
     Indication: MIGRAINE
     Dosage: UNK
     Route: 065

REACTIONS (7)
  - Insomnia [Unknown]
  - Paraesthesia [Unknown]
  - Intentional product misuse [Unknown]
  - Drug abuse [Unknown]
  - Off label use [Unknown]
  - Product use in unapproved indication [Unknown]
  - Therapy partial responder [Unknown]

NARRATIVE: CASE EVENT DATE: 200902
